FAERS Safety Report 20832060 (Version 2)
Quarter: 2022Q2

REPORT INFORMATION
  Report Type: Report from Study
  Country: US (occurrence: US)
  Receive Date: 20220516
  Receipt Date: 20220530
  Transmission Date: 20220721
  Serious: No
  Sender: FDA-Public Use
  Company Number: US-BRISTOL-MYERS SQUIBB COMPANY-2022-033061

PATIENT
  Age: 28 Year
  Sex: Female

DRUGS (1)
  1. ZEPOSIA [Suspect]
     Active Substance: OZANIMOD HYDROCHLORIDE
     Indication: Colitis ulcerative
     Route: 048
     Dates: start: 20220406

REACTIONS (4)
  - Pyrexia [Recovered/Resolved]
  - Migraine [Recovered/Resolved]
  - Headache [Unknown]
  - Adverse event [Unknown]

NARRATIVE: CASE EVENT DATE: 20220406
